FAERS Safety Report 17227899 (Version 4)
Quarter: 2020Q2

REPORT INFORMATION
  Report Type: Spontaneous
  Country: CA (occurrence: CA)
  Receive Date: 20200103
  Receipt Date: 20200427
  Transmission Date: 20200713
  Serious: Yes (Other)
  Sender: FDA-Public Use
  Company Number: CA-CELLTRION INC.-2019CA025123

PATIENT

DRUGS (6)
  1. INFLECTRA [Suspect]
     Active Substance: INFLIXIMAB-DYYB
     Dosage: 300 MG, Q (EVERY) 0, 2, WEEKS, THEN EVERY 8 WEEKS
     Route: 042
     Dates: start: 20200212
  2. INFLECTRA [Suspect]
     Active Substance: INFLIXIMAB-DYYB
     Dosage: 300 MG, Q (EVERY) 0, 2, WEEKS, THEN EVERY 8 WEEKS
     Route: 042
     Dates: start: 20200408
  3. INFLECTRA [Suspect]
     Active Substance: INFLIXIMAB-DYYB
     Indication: CROHN^S DISEASE
     Dosage: 300 MG, Q (EVERY) 0, 2, WEEKS, THEN EVERY 8 WEEKS
     Route: 042
     Dates: start: 20190912
  4. INFLECTRA [Suspect]
     Active Substance: INFLIXIMAB-DYYB
     Dosage: 300 MG, Q (EVERY) 0, 2, WEEKS, THEN EVERY 8 WEEKS
     Route: 042
     Dates: start: 20191025
  5. INFLECTRA [Suspect]
     Active Substance: INFLIXIMAB-DYYB
     Dosage: 300 MG, Q (EVERY) 0, 2, WEEKS, THEN EVERY 8 WEEKS
     Route: 042
     Dates: start: 20190928
  6. SOLU-MEDROL [Concomitant]
     Active Substance: METHYLPREDNISOLONE SODIUM SUCCINATE
     Dosage: UNK
     Route: 042
     Dates: start: 20190906

REACTIONS (6)
  - Product use issue [Unknown]
  - Post procedural complication [Unknown]
  - Condition aggravated [Unknown]
  - Off label use [Unknown]
  - Abscess intestinal [Unknown]
  - Nasopharyngitis [Unknown]

NARRATIVE: CASE EVENT DATE: 20190912
